FAERS Safety Report 10660199 (Version 1)
Quarter: 2014Q4

REPORT INFORMATION
  Report Type: Spontaneous
  Country: CA (occurrence: CA)
  Receive Date: 20141217
  Receipt Date: 20141217
  Transmission Date: 20150529
  Serious: Yes (Hospitalization)
  Sender: FDA-Public Use
  Company Number: PHHY2014CA161772

PATIENT
  Age: 49 Year
  Sex: Female

DRUGS (2)
  1. 5-FLUOROURACIL [Suspect]
     Active Substance: FLUOROURACIL
     Indication: BLADDER TRANSITIONAL CELL CARCINOMA
     Dosage: 1000 MG/M2, UNK
     Route: 042
  2. CISPLATIN. [Concomitant]
     Active Substance: CISPLATIN
     Indication: BLADDER TRANSITIONAL CELL CARCINOMA
     Dosage: 75 MG/M2, UNK
     Route: 065

REACTIONS (22)
  - Respiratory distress [Unknown]
  - Lung consolidation [Unknown]
  - Nausea [Unknown]
  - Hypotension [Unknown]
  - Arteriospasm coronary [Unknown]
  - Respiratory failure [Recovering/Resolving]
  - Hypoperfusion [Unknown]
  - Hypovolaemia [Unknown]
  - Electrocardiogram ST segment elevation [Recovered/Resolved]
  - Pleural effusion [Unknown]
  - Tachycardia [Unknown]
  - Cardiomyopathy acute [Unknown]
  - Vomiting [Unknown]
  - Cardiogenic shock [Unknown]
  - Ejection fraction decreased [Recovering/Resolving]
  - Chest pain [Unknown]
  - Cyanosis [Unknown]
  - Cardiac output decreased [Recovering/Resolving]
  - Multi-organ failure [Unknown]
  - Hypoxia [Unknown]
  - Renal impairment [Recovered/Resolved]
  - Ventricular dysfunction [Recovering/Resolving]
